FAERS Safety Report 9196549 (Version 1)
Quarter: 2013Q1

REPORT INFORMATION
  Report Type: Spontaneous
  Country: US (occurrence: None)
  Receive Date: 20120709
  Receipt Date: 20120709
  Transmission Date: 20140127
  Serious: Yes (Death)
  Sender: FDA-Public Use
  Company Number: PHHY2011US49718

PATIENT
  Age: 90 Year
  Sex: Female

DRUGS (4)
  1. GLEEVEC (IMATINIB) UNKNOWN [Suspect]
     Dates: start: 2007
  2. VITAMINS (NO INGREDIENTS/SUBSTANCES) [Concomitant]
  3. IRON (IRON) [Concomitant]
  4. NEXIUM (ESOMEPRAZOLE MAGNESIUM) [Concomitant]

REACTIONS (14)
  - Neoplasm malignant [None]
  - Gastrointestinal sounds abnormal [None]
  - Vomiting [None]
  - Decreased appetite [None]
  - Dysphagia [None]
  - Dysgeusia [None]
  - Diarrhoea [None]
  - Abnormal loss of weight [None]
  - Alopecia [None]
  - Pallor [None]
  - Oedema peripheral [None]
  - Abdominal pain upper [None]
  - Dyspepsia [None]
  - Abdominal discomfort [None]
